FAERS Safety Report 24346302 (Version 8)
Quarter: 2024Q4

REPORT INFORMATION
  Report Type: Spontaneous
  Country: US (occurrence: US)
  Receive Date: 20240921
  Receipt Date: 20241223
  Transmission Date: 20250115
  Serious: Yes (Other)
  Sender: ROCHE
  Company Number: US-ROCHE-10000079736

PATIENT
  Age: 79 Year
  Sex: Female

DRUGS (19)
  1. VABYSMO [Suspect]
     Active Substance: FARICIMAB-SVOA
     Indication: Diabetic retinal oedema
     Route: 065
     Dates: start: 20240103
  2. AVASTIN [Suspect]
     Active Substance: BEVACIZUMAB
     Indication: Diabetic retinal oedema
     Route: 065
  3. EYLEA [Concomitant]
     Active Substance: AFLIBERCEPT
     Route: 065
  4. ALBUTEROL [Concomitant]
     Active Substance: ALBUTEROL
     Route: 065
  5. AMLODIPINE [Concomitant]
     Active Substance: AMLODIPINE BESYLATE
     Route: 065
  6. Clobetasol steroid cream [Concomitant]
     Route: 065
  7. GABAPENTIN [Concomitant]
     Active Substance: GABAPENTIN
     Route: 065
  8. JARDIANCE [Concomitant]
     Active Substance: EMPAGLIFLOZIN
     Route: 065
  9. LOSARTAN [Concomitant]
     Active Substance: LOSARTAN
     Route: 065
  10. POTASSIUM [Concomitant]
     Active Substance: POTASSIUM
     Route: 065
  11. SIMVASTATIN [Concomitant]
     Active Substance: SIMVASTATIN
     Route: 065
  12. PREDNISONE [Concomitant]
     Active Substance: PREDNISONE
     Route: 065
  13. PREDNISONE [Concomitant]
     Active Substance: PREDNISONE
     Route: 048
  14. MOXIFLOXACIN [Concomitant]
     Active Substance: MOXIFLOXACIN
     Route: 061
  15. PREDNISOLONE [Concomitant]
     Active Substance: PREDNISOLONE
     Route: 065
  16. LEVAQUIN [Concomitant]
     Active Substance: LEVOFLOXACIN
     Route: 065
  17. VALTREX [Concomitant]
     Active Substance: VALACYCLOVIR HYDROCHLORIDE
     Route: 065
  18. VANCOMYCIN [Concomitant]
     Active Substance: VANCOMYCIN
     Route: 065
  19. CEFTAZIDIME [Concomitant]
     Active Substance: CEFTAZIDIME
     Route: 065

REACTIONS (9)
  - Retinal perivascular sheathing [Unknown]
  - Blindness [Unknown]
  - Keratic precipitates [Unknown]
  - Vitritis [Unknown]
  - Retinal artery occlusion [Unknown]
  - Off label use [Unknown]
  - Off label use [Unknown]
  - Endophthalmitis [Unknown]
  - Systemic inflammatory response syndrome [Unknown]
